FAERS Safety Report 5954189-3 (Version None)
Quarter: 2008Q4

REPORT INFORMATION
  Report Type: 
  Country: None (occurrence: None)
  Receive Date: 20081113
  Receipt Date: 20081031
  Transmission Date: 20090506
  Serious: Yes (Congenital Anomaly)
  Sender: FDA-Public Use
  Company Number: 1000000956

PATIENT
  Sex: Male
  Weight: 3.18 kg

DRUGS (2)
  1. ESCITALOPRAM OXALATE [Suspect]
     Dosage: 20 MG (20 MG, 1 IN 1 D), TRANSPLACENTAL
     Route: 064
     Dates: end: 20080625
  2. ABILIFY [Suspect]
     Dosage: 30 MG (30 MG, 1 IN 1 D), TRANPLACENTAL
     Route: 064
     Dates: end: 20080625

REACTIONS (10)
  - APGAR SCORE LOW [None]
  - BRADYCARDIA NEONATAL [None]
  - CAESAREAN SECTION [None]
  - DYSMORPHISM [None]
  - EAR MALFORMATION [None]
  - FEEDING DISORDER NEONATAL [None]
  - HYPOTONIA NEONATAL [None]
  - INFANTILE APNOEIC ATTACK [None]
  - MATERNAL DRUGS AFFECTING FOETUS [None]
  - MULTIPLE CONGENITAL ABNORMALITIES [None]
